FAERS Safety Report 8363515-X (Version None)
Quarter: 2012Q2

REPORT INFORMATION
  Report Type: 
  Country: None (occurrence: None)
  Receive Date: 20120516
  Receipt Date: 20120502
  Transmission Date: 20120825
  Serious: Yes (Death, Hospitalization, Other)
  Sender: FDA-Public Use
  Company Number: US-MYLANLABS-2009AL002856

PATIENT
  Sex: Female
  Weight: 60.78 kg

DRUGS (26)
  1. LEVOXYL [Concomitant]
  2. GLIPIZIDE [Concomitant]
  3. CARDIZEM [Concomitant]
  4. POTASSIUM CHLORIDE [Concomitant]
  5. LISINOPRIL [Concomitant]
  6. COUMADIN [Concomitant]
  7. HEPARIN [Concomitant]
  8. ACTIGALL [Concomitant]
     Dosage: TWICE
  9. LASIX [Concomitant]
  10. SYNTHROID [Concomitant]
  11. XANAX [Concomitant]
  12. TYLENOL (CAPLET) [Concomitant]
  13. MAGNESIUM HYDROXIDE TAB [Concomitant]
  14. ZOFRAN [Concomitant]
  15. COREG [Concomitant]
  16. SPIRONOLACTONE [Concomitant]
  17. NEXIUM [Concomitant]
  18. DIGOXIN [Suspect]
     Route: 048
     Dates: start: 20060725, end: 20080423
  19. AUGMENTIN [Concomitant]
  20. NITROGLYCERIN [Concomitant]
  21. ATROVENT [Concomitant]
  22. CARVEDILOL [Concomitant]
  23. ASPIRIN [Concomitant]
  24. ALBUTEROL [Concomitant]
  25. PRINIVIL [Concomitant]
  26. URSODIOL [Concomitant]

REACTIONS (70)
  - CHOLECYSTITIS [None]
  - TYPE 2 DIABETES MELLITUS [None]
  - DYSPNOEA PAROXYSMAL NOCTURNAL [None]
  - HYPERKALAEMIA [None]
  - COMPUTERISED TOMOGRAM ABNORMAL [None]
  - CARDIOMYOPATHY [None]
  - ABDOMINAL DISCOMFORT [None]
  - VOMITING [None]
  - JAUNDICE [None]
  - ATRIAL FLUTTER [None]
  - OSTEOPOROSIS [None]
  - ARTERIAL STENOSIS LIMB [None]
  - CHILLS [None]
  - ELECTROCARDIOGRAM ABNORMAL [None]
  - LABORATORY TEST ABNORMAL [None]
  - LYMPHORRHOEA [None]
  - INJURY [None]
  - EJECTION FRACTION DECREASED [None]
  - ATRIAL FIBRILLATION [None]
  - CARDIAC FAILURE CONGESTIVE [None]
  - ASTHENIA [None]
  - HYPERGLYCAEMIA [None]
  - PERIPHERAL VASCULAR DISORDER [None]
  - ULTRASOUND DOPPLER ABNORMAL [None]
  - ECONOMIC PROBLEM [None]
  - DEATH [None]
  - OEDEMA PERIPHERAL [None]
  - SINUS TACHYCARDIA [None]
  - MITRAL VALVE INCOMPETENCE [None]
  - BILE DUCT OBSTRUCTION [None]
  - BLOOD BILIRUBIN INCREASED [None]
  - RENAL ARTERY STENOSIS [None]
  - HYPERTENSION [None]
  - CARDIAC MURMUR [None]
  - PROTHROMBIN LEVEL INCREASED [None]
  - CELLULITIS [None]
  - CACHEXIA [None]
  - CYANOSIS [None]
  - COUGH [None]
  - RENAL ATROPHY [None]
  - SUPRAVENTRICULAR EXTRASYSTOLES [None]
  - DYSPNOEA [None]
  - HEART RATE INCREASED [None]
  - TRICUSPID VALVE INCOMPETENCE [None]
  - CHOLELITHIASIS [None]
  - PAIN IN EXTREMITY [None]
  - POLYCYTHAEMIA [None]
  - FEELING COLD [None]
  - ECHOCARDIOGRAM ABNORMAL [None]
  - ELECTROCARDIOGRAM AMBULATORY ABNORMAL [None]
  - ILL-DEFINED DISORDER [None]
  - REFUSAL OF TREATMENT BY PATIENT [None]
  - HYPOTHYROIDISM [None]
  - RENAL FAILURE CHRONIC [None]
  - BLOOD UREA INCREASED [None]
  - INTERNATIONAL NORMALISED RATIO INCREASED [None]
  - SKIN ULCER [None]
  - RESPIRATORY TRACT CONGESTION [None]
  - ATRIOVENTRICULAR BLOCK [None]
  - DYSPNOEA EXERTIONAL [None]
  - BRAIN NATRIURETIC PEPTIDE INCREASED [None]
  - HYPOTENSION [None]
  - MULTI-ORGAN FAILURE [None]
  - SEPTIC SHOCK [None]
  - AZOTAEMIA [None]
  - ERYTHEMA [None]
  - PYREXIA [None]
  - WOUND SECRETION [None]
  - HYPOXIA [None]
  - COLD SWEAT [None]
